FAERS Safety Report 13517050 (Version 1)
Quarter: 2017Q2

REPORT INFORMATION
  Report Type: Spontaneous
  Country: US (occurrence: US)
  Receive Date: 20170505
  Receipt Date: 20170505
  Transmission Date: 20170830
  Serious: Yes (Hospitalization)
  Sender: FDA-Public Use
  Company Number: None

PATIENT
  Age: 56 Year
  Sex: Female
  Weight: 92.2 kg

DRUGS (13)
  1. AROMASIN [Concomitant]
     Active Substance: EXEMESTANE
  2. ROXICODONE [Concomitant]
     Active Substance: OXYCODONE HYDROCHLORIDE
  3. PROTONIX [Concomitant]
     Active Substance: PANTOPRAZOLE SODIUM
  4. APAP [Concomitant]
     Active Substance: ACETAMINOPHEN
  5. ASA [Concomitant]
     Active Substance: ASPIRIN
  6. PRINIVIL [Concomitant]
     Active Substance: LISINOPRIL
  7. GLIMEPIRIDE. [Suspect]
     Active Substance: GLIMEPIRIDE
     Indication: DIABETES MELLITUS
     Route: 048
  8. CYMBALTA [Concomitant]
     Active Substance: DULOXETINE HYDROCHLORIDE
  9. NOLVADEX [Concomitant]
     Active Substance: TAMOXIFEN CITRATE
  10. XANAX [Concomitant]
     Active Substance: ALPRAZOLAM
  11. ATENOLOL. [Concomitant]
     Active Substance: ATENOLOL
  12. NEURONTIN [Suspect]
     Active Substance: GABAPENTIN
  13. LASIX [Concomitant]
     Active Substance: FUROSEMIDE

REACTIONS (2)
  - Hypoglycaemia [None]
  - Hypophagia [None]

NARRATIVE: CASE EVENT DATE: 20161230
